FAERS Safety Report 13863300 (Version 2)
Quarter: 2024Q2

REPORT INFORMATION
  Report Type: Spontaneous
  Country: US (occurrence: US)
  Receive Date: 20170814
  Receipt Date: 20240420
  Transmission Date: 20240716
  Serious: Yes (Other)
  Sender: FDA-Public Use
  Company Number: US-ACCORD-056946

PATIENT
  Age: 72 Year
  Sex: Male

DRUGS (2)
  1. DOCETAXEL [Suspect]
     Active Substance: DOCETAXEL\DOCETAXEL ANHYDROUS
     Indication: Prostate cancer metastatic
     Dosage: 143 MG
     Route: 042
  2. DEGARELIX [Concomitant]
     Active Substance: DEGARELIX
     Indication: Androgen therapy

REACTIONS (2)
  - Infusion site plaque [Recovered/Resolved]
  - Infusion site extravasation [Recovered/Resolved]
